FAERS Safety Report 11869830 (Version 5)
Quarter: 2025Q4

REPORT INFORMATION
  Report Type: Spontaneous
  Country: US (occurrence: US)
  Receive Date: 20151228
  Receipt Date: 20251005
  Transmission Date: 20260117
  Serious: Yes (Other)
  Sender: AUROBINDO
  Company Number: US-AUROBINDO-AUR-APL-2015-11669

PATIENT
  Age: 78 Year
  Sex: Male

DRUGS (9)
  1. CARVEDILOL [Interacting]
     Active Substance: CARVEDILOL
     Indication: Product used for unknown indication
     Dosage: UNK
     Route: 065
  2. DOCETAXEL [Interacting]
     Active Substance: DOCETAXEL
     Indication: Prostate cancer metastatic
     Dosage: 75 MG/M2 EVERY 3 WEEK DOSING
     Route: 065
  3. DOCETAXEL [Interacting]
     Active Substance: DOCETAXEL
     Dosage: 30 MG/M2, EVERY WEEK
     Route: 065
  4. DRONEDARONE [Interacting]
     Active Substance: DRONEDARONE
     Indication: Product used for unknown indication
     Dosage: UNK
     Route: 065
  5. BICALUTAMIDE [Interacting]
     Active Substance: BICALUTAMIDE
     Indication: Prostate cancer metastatic
     Dosage: UNK
     Route: 065
  6. TAXOTERE [Interacting]
     Active Substance: DOCETAXEL
     Indication: Prostate cancer metastatic
     Dosage: 75 MG/M2 EVERY 3 WEEKS
     Route: 065
  7. TAXOTERE [Interacting]
     Active Substance: DOCETAXEL
     Dosage: 30 MG/M2 WEEKLY
     Route: 065
  8. LEUPROLIDE [Concomitant]
     Active Substance: LEUPROLIDE
     Indication: Prostate cancer metastatic
     Dosage: UNK
     Route: 065
  9. LEUPROLIDE ACETATE [Concomitant]
     Active Substance: LEUPROLIDE ACETATE
     Indication: Prostate cancer metastatic
     Dosage: UNK
     Route: 065

REACTIONS (5)
  - Drug-induced liver injury [Not Recovered/Not Resolved]
  - Inflammation [Not Recovered/Not Resolved]
  - Cholangitis sclerosing [Unknown]
  - Cholestasis [Unknown]
  - Drug interaction [Unknown]
